FAERS Safety Report 8723367 (Version 2)
Quarter: 2012Q4

REPORT INFORMATION
  Report Type: 
  Country: FR (occurrence: FR)
  Receive Date: 20120814
  Receipt Date: 20120925
  Transmission Date: 20130627
  Serious: Yes (Other)
  Sender: FDA-Public Use
  Company Number: FR-ABBOTT-12P-056-0966847-00

PATIENT
  Age: 41 None
  Sex: Female

DRUGS (5)
  1. NORVIR [Suspect]
     Indication: HIV INFECTION
     Dates: start: 200804, end: 200906
  2. NORVIR [Suspect]
     Route: 048
     Dates: start: 20110822, end: 20120313
  3. TRUVADA [Suspect]
     Indication: HIV INFECTION
     Route: 048
     Dates: start: 20080414
  4. REYATAZ [Suspect]
     Indication: HIV INFECTION
     Dates: start: 200808, end: 200906
  5. REYATAZ [Suspect]
     Route: 048
     Dates: start: 20110822, end: 20120313

REACTIONS (4)
  - Weight increased [Recovered/Resolved]
  - Liver disorder [Unknown]
  - Weight increased [Recovered/Resolved]
  - Weight increased [Recovered/Resolved]
